FAERS Safety Report 20087181 (Version 2)
Quarter: 2022Q1

REPORT INFORMATION
  Report Type: Report from Study
  Country: CO (occurrence: CO)
  Receive Date: 20211118
  Receipt Date: 20220104
  Transmission Date: 20220423
  Serious: Yes (Other)
  Sender: FDA-Public Use
  Company Number: CO-BRISTOL-MYERS SQUIBB COMPANY-BMS-2021-122589

PATIENT
  Sex: Female

DRUGS (6)
  1. APIXABAN [Suspect]
     Active Substance: APIXABAN
     Indication: Cerebrovascular accident prophylaxis
     Dosage: 2.5 MILLIGRAM
     Route: 048
  2. APIXABAN [Suspect]
     Active Substance: APIXABAN
     Indication: Myocardial ischaemia
  3. APIXABAN [Suspect]
     Active Substance: APIXABAN
     Indication: Angina pectoris
  4. APIXABAN [Suspect]
     Active Substance: APIXABAN
     Indication: Cardiac valve sclerosis
  5. APIXABAN [Suspect]
     Active Substance: APIXABAN
     Indication: Essential hypertension
  6. APIXABAN [Suspect]
     Active Substance: APIXABAN
     Indication: Tachycardia

REACTIONS (2)
  - Myocardial infarction [Unknown]
  - Tachycardia [Unknown]

NARRATIVE: CASE EVENT DATE: 20210901
